FAERS Safety Report 20938115 (Version 1)
Quarter: 2022Q2

REPORT INFORMATION
  Report Type: Spontaneous
  Country: US (occurrence: US)
  Receive Date: 20220609
  Receipt Date: 20220609
  Transmission Date: 20220721
  Serious: No
  Sender: FDA-Public Use
  Company Number: US-TARO PHARMACEUTICALS USA INC.-2021TAR00991

PATIENT
  Age: 7 Month
  Sex: Male
  Weight: 11.338 kg

DRUGS (1)
  1. FEVERALL [Interacting]
     Active Substance: ACETAMINOPHEN
     Indication: Pyrexia
     Dosage: 80 MILLIGRAM, 1DOSE/6HOUR
     Route: 054

REACTIONS (3)
  - Malabsorption [Not Recovered/Not Resolved]
  - Condition aggravated [Not Recovered/Not Resolved]
  - Therapeutic product effect incomplete [Unknown]

NARRATIVE: CASE EVENT DATE: 20210915
